FAERS Safety Report 17877940 (Version 1)
Quarter: 2020Q2

REPORT INFORMATION
  Report Type: Other
  Country: NP (occurrence: NP)
  Receive Date: 20200610
  Receipt Date: 20200610
  Transmission Date: 20200714
  Serious: Yes (Hospitalization, Other)
  Sender: FDA-Public Use
  Company Number: NP-DENTSPLY-2020SCDP000189

PATIENT
  Age: 22 Year
  Sex: Male

DRUGS (4)
  1. BUPIVACAINE. [Suspect]
     Active Substance: BUPIVACAINE
     Indication: LOCAL ANAESTHESIA
     Dosage: 8 MILLILITER, TOTAL
  2. DEXAMETHASONE. [Concomitant]
     Active Substance: DEXAMETHASONE
     Indication: LOCAL ANAESTHESIA
     Dosage: 2 MILLILITER, TOTAL, 2ML (8MG) OF DEXAMETHASONE INJECTION
  3. LIDOCAINE HYDROCHLORIDE AND EPINEPHRINE BITARTRATE [Suspect]
     Active Substance: EPINEPHRINE BITARTRATE\LIDOCAINE HYDROCHLORIDE
     Indication: LOCAL ANAESTHESIA
     Dosage: 5 MILLILITER, TOTAL
  4. SALINE [SODIUM CHLORIDE] [Concomitant]
     Active Substance: SODIUM CHLORIDE
     Indication: PRODUCT USED FOR UNKNOWN INDICATION
     Dosage: 10 MILLILITER, TOTAL

REACTIONS (3)
  - Neurotoxicity [Recovered/Resolved]
  - Delayed recovery from anaesthesia [Recovered/Resolved]
  - Vasoconstriction [Recovered/Resolved]
